FAERS Safety Report 7012915-9 (Version None)
Quarter: 2010Q3

REPORT INFORMATION
  Report Type: 
  Country: None (occurrence: None)
  Receive Date: 20100924
  Receipt Date: 20100913
  Transmission Date: 20110219
  Serious: Yes (Other)
  Sender: FDA-Public Use
  Company Number: US-PFIZER INC-2010116267

PATIENT
  Sex: Male

DRUGS (2)
  1. NEURONTIN [Suspect]
     Indication: NEURALGIA
     Dosage: UNK
     Route: 048
     Dates: start: 20100830
  2. LIDODERM [Concomitant]
     Dosage: UNK

REACTIONS (3)
  - BACTERIAL INFECTION [None]
  - NEURALGIA [None]
  - TONGUE DISORDER [None]
